FAERS Safety Report 4676488-8 (Version None)
Quarter: 2005Q2

REPORT INFORMATION
  Report Type: 
  Country: None (occurrence: None)
  Receive Date: 20050527
  Receipt Date: 20050519
  Transmission Date: 20051028
  Serious: Yes (Hospitalization)
  Sender: FDA-Public Use
  Company Number: MY-MERCK-0505MYS00013

PATIENT
  Age: 49 Year
  Sex: Male
  Weight: 72 kg

DRUGS (3)
  1. VYTORIN [Suspect]
     Indication: BLOOD CHOLESTEROL DECREASED
     Route: 048
     Dates: start: 20050301, end: 20050301
  2. SIMVASTATIN [Concomitant]
     Route: 048
     Dates: start: 20050301, end: 20050301
  3. SIMVASTATIN [Concomitant]
     Route: 048
     Dates: start: 20050301

REACTIONS (3)
  - BLOOD CREATINE PHOSPHOKINASE INCREASED [None]
  - MOBILITY DECREASED [None]
  - PAIN [None]
